FAERS Safety Report 7084277 (Version 13)
Quarter: 2013Q1

REPORT INFORMATION
  Report Type: Report from Study
  Country: JP (occurrence: JP)
  Receive Date: 20090818
  Receipt Date: 20130129
  Transmission Date: 20140127
  Serious: Yes (Hospitalization, Other)
  Sender: FDA-Public Use
  Company Number: PHHY2009JP33612

PATIENT
  Age: 80 Year
  Sex: Male

DRUGS (28)
  1. AMN107 [Suspect]
     Indication: CHRONIC MYELOID LEUKAEMIA
     Dosage: 800 MG, DAILY
     Route: 048
     Dates: start: 20090508, end: 20090512
  2. AMN107 [Suspect]
     Dosage: 800 MG DAILY
     Route: 048
     Dates: start: 20090522, end: 20090602
  3. AMN107 [Suspect]
     Dosage: 400 MG DAILY
     Route: 048
     Dates: start: 20090612, end: 20090724
  4. AMN107 [Suspect]
     Dosage: 400 MG DAILY
     Route: 048
     Dates: start: 20090807, end: 20091211
  5. AMN107 [Suspect]
     Dosage: 400 MG, DAILY
     Route: 048
     Dates: start: 20091218, end: 20100308
  6. AMN107 [Suspect]
     Dosage: 400 MG, DAILY
     Route: 048
     Dates: start: 20100326, end: 20100724
  7. AMN107 [Suspect]
     Dosage: 400 MG, DAILY
     Route: 048
     Dates: start: 20100809, end: 20101206
  8. AMN107 [Suspect]
     Dosage: 400 MG, DAILY
     Route: 048
     Dates: start: 20101213, end: 20110627
  9. AMARYL [Suspect]
     Indication: DIABETES MELLITUS
     Dosage: 1 MG,DAILY
     Route: 048
     Dates: start: 20081217, end: 20090806
  10. AMARYL [Suspect]
     Dosage: 2 MG,DAILY
     Route: 048
     Dates: start: 20090807, end: 20090820
  11. AMARYL [Suspect]
     Dosage: 3 MG, DAILY
     Route: 048
     Dates: start: 20090821, end: 20100310
  12. AMARYL [Suspect]
     Dosage: 1 MG,DAILY
     Route: 048
     Dates: start: 20100312, end: 20100422
  13. AMARYL [Suspect]
     Dosage: 2 MG, DAILY
     Route: 048
     Dates: start: 20100423, end: 20110509
  14. JANUVIA [Suspect]
     Indication: DIABETES MELLITUS
     Dosage: 50 MG, DAILY
     Route: 048
     Dates: start: 20100123, end: 20100310
  15. JANUVIA [Suspect]
     Dosage: 50 MG, DAILY
     Route: 048
     Dates: start: 20100312, end: 20100724
  16. JANUVIA [Suspect]
     Dosage: 50 MG, DAILY
     Route: 048
     Dates: start: 20100927
  17. HYDREA [Concomitant]
     Indication: CHRONIC MYELOID LEUKAEMIA
     Dosage: 1000 MG, UNK
     Route: 048
     Dates: end: 20090508
  18. GLUCOBAY [Concomitant]
     Indication: DIABETES MELLITUS
     Dosage: 150 MG, UNK
     Route: 048
     Dates: start: 20080611, end: 20100122
  19. SENNOSIDE [Concomitant]
     Indication: CONSTIPATION
     Dosage: 24 MG, UNK
     Route: 048
     Dates: start: 20080402, end: 20101108
  20. SENNOSIDE [Concomitant]
     Indication: DIABETES MELLITUS
  21. KAMAG G [Concomitant]
     Indication: DIABETES MELLITUS
     Dosage: 3.0 G, UNK
     Route: 048
     Dates: start: 20080402, end: 20090822
  22. KAMAG G [Concomitant]
     Indication: CONSTIPATION
  23. STOGAR [Concomitant]
     Dosage: 20 MG, UNK
     Route: 048
     Dates: start: 20090512
  24. GLIMEPIRIDE [Concomitant]
     Indication: DIABETES MELLITUS
     Dosage: 1 MG, UNK
     Route: 048
     Dates: start: 20110510, end: 20120116
  25. ALOSENN [Concomitant]
     Indication: CONSTIPATION
     Dosage: 3 G, UNK
     Route: 048
     Dates: start: 20101108
  26. GLIMICRON [Concomitant]
     Indication: DIABETES MELLITUS
     Dosage: 20 MG
     Route: 048
     Dates: start: 20120320
  27. PLAVIX [Concomitant]
     Dosage: 50 MG
     Route: 048
     Dates: start: 20120227, end: 20120511
  28. TICLOPIDINE HYDROCHLORIDE [Concomitant]
     Dosage: 100 MG
     Route: 048
     Dates: start: 20120511

REACTIONS (17)
  - Electrocardiogram QT prolonged [Recovered/Resolved]
  - Hypoglycaemia [Recovered/Resolved]
  - Altered state of consciousness [Unknown]
  - Muscular weakness [Recovering/Resolving]
  - Lacunar infarction [Recovering/Resolving]
  - Decreased appetite [Recovered/Resolved]
  - Abdominal discomfort [Recovered/Resolved]
  - Abdominal distension [Recovered/Resolved]
  - Abdominal pain upper [Recovered/Resolved]
  - Rash generalised [Recovered/Resolved]
  - Rash papular [Not Recovered/Not Resolved]
  - Platelet count decreased [Not Recovered/Not Resolved]
  - Weight decreased [Recovered/Resolved]
  - Blood phosphorus decreased [Not Recovered/Not Resolved]
  - Blood glucose increased [Recovering/Resolving]
  - Bacterial infection [Recovered/Resolved]
  - Blood potassium decreased [Recovered/Resolved]
